FAERS Safety Report 5780339-8 (Version None)
Quarter: 2008Q2

REPORT INFORMATION
  Report Type: 
  Country: None (occurrence: None)
  Receive Date: 20080620
  Receipt Date: 20080611
  Transmission Date: 20081010
  Serious: Yes (Other)
  Sender: FDA-Public Use
  Company Number: B0361211A

PATIENT
  Age: 62 Year
  Sex: Male

DRUGS (11)
  1. PAROXETINE HCL [Suspect]
     Route: 065
     Dates: start: 19960430
  2. VENLAFAXINE HCL [Concomitant]
     Dates: start: 20050501
  3. ST JOHNS WORT [Concomitant]
     Dates: start: 19990101
  4. QVAR 40 [Concomitant]
     Indication: ASTHMA
  5. ENALAPRIL MALEATE [Concomitant]
  6. BENDROFLUAZIDE [Concomitant]
  7. ALLOPURINOL [Concomitant]
  8. PROMAZINE HYDROCHLORIDE [Concomitant]
  9. ZOPICLONE [Concomitant]
     Dates: start: 20060701
  10. CITALOPRAM HYDROBROMIDE [Concomitant]
     Dates: start: 20050801
  11. ESCITALOPRAM [Concomitant]

REACTIONS (28)
  - AGITATION [None]
  - ANXIETY [None]
  - CONSTIPATION [None]
  - CRYING [None]
  - DEPRESSED MOOD [None]
  - DEPRESSION [None]
  - DRUG WITHDRAWAL SYNDROME [None]
  - DYSKINESIA [None]
  - DYSPEPSIA [None]
  - EMOTIONAL DISTRESS [None]
  - FATIGUE [None]
  - GASTROINTESTINAL DISORDER [None]
  - HOT FLUSH [None]
  - HYPERHIDROSIS [None]
  - HYPERVENTILATION [None]
  - INSOMNIA [None]
  - LIBIDO DECREASED [None]
  - MALAISE [None]
  - MUSCLE TWITCHING [None]
  - PALPITATIONS [None]
  - PANIC ATTACK [None]
  - POOR QUALITY SLEEP [None]
  - PRURITUS [None]
  - SELF-INJURIOUS IDEATION [None]
  - SOMNOLENCE [None]
  - SUICIDAL IDEATION [None]
  - TREMOR [None]
  - WITHDRAWAL SYNDROME [None]
